FAERS Safety Report 5411794-0 (Version None)
Quarter: 2007Q3

REPORT INFORMATION
  Report Type: 
  Country: None (occurrence: None)
  Receive Date: 20070813
  Receipt Date: 20070806
  Transmission Date: 20080115
  Serious: Yes (Other)
  Sender: FDA-Public Use
  Company Number: PHEH2007US10636

PATIENT
  Age: 50 Year
  Sex: Male

DRUGS (5)
  1. ZOMETA [Suspect]
     Indication: MULTIPLE MYELOMA
     Dosage: UNK, UNK
  2. CHLORHEXIDINE GLUCONATE [Concomitant]
  3. DEXAMETHASONE 0.5MG TAB [Concomitant]
  4. LOPRESSOR [Concomitant]
     Dosage: 50 MG, BID
  5. ATIVAN [Concomitant]
     Dosage: 0.5 MG, PRN

REACTIONS (22)
  - ABSCESS [None]
  - BETA 2 MICROGLOBULIN INCREASED [None]
  - BONE DISORDER [None]
  - BONE PAIN [None]
  - DENTAL TREATMENT [None]
  - ERYTHEMA [None]
  - EXCESSIVE GRANULATION TISSUE [None]
  - FISTULA [None]
  - HAEMATOCRIT DECREASED [None]
  - HAEMOGLOBIN DECREASED [None]
  - HYPERGAMMAGLOBULINAEMIA [None]
  - IMPAIRED HEALING [None]
  - NEURALGIA [None]
  - OSTEONECROSIS [None]
  - PURULENCE [None]
  - SEQUESTRECTOMY [None]
  - SUTURE INSERTION [None]
  - SWELLING [None]
  - TENDERNESS [None]
  - TOOTH EXTRACTION [None]
  - WOUND DEBRIDEMENT [None]
  - WOUND DEHISCENCE [None]
